FAERS Safety Report 24236258 (Version 1)
Quarter: 2024Q3

REPORT INFORMATION
  Report Type: Report from Study
  Country: GB (occurrence: GB)
  Receive Date: 20240822
  Receipt Date: 20240822
  Transmission Date: 20241016
  Serious: Yes (Other)
  Sender: JOHNSON AND JOHNSON
  Company Number: GB-JNJFOC-20240838441

PATIENT
  Age: 64 Year
  Sex: Female

DRUGS (1)
  1. TREMFYA [Suspect]
     Active Substance: GUSELKUMAB
     Indication: Psoriasis
     Route: 058

REACTIONS (6)
  - Lower respiratory tract infection [Unknown]
  - Injection related reaction [Unknown]
  - Abdominal pain lower [Recovered/Resolved]
  - Constipation [Unknown]
  - Headache [Recovered/Resolved]
  - Dental care [Unknown]

NARRATIVE: CASE EVENT DATE: 20240517
